FAERS Safety Report 5157095-X (Version None)
Quarter: 2006Q4

REPORT INFORMATION
  Report Type: 
  Country: None (occurrence: None)
  Receive Date: 20061127
  Receipt Date: 20060308
  Transmission Date: 20070319
  Serious: Yes (Hospitalization)
  Sender: FDA-Public Use
  Company Number: US-ELI_LILLY_AND_COMPANY-US200606002612

PATIENT
  Age: 45 Year
  Sex: Female
  Weight: 61.224 kg

DRUGS (4)
  1. ZYPREXA [Suspect]
     Indication: BIPOLAR I DISORDER
     Dosage: 2.5 MG, UNK
     Dates: start: 20021101, end: 20040601
  2. ZYPREXA [Suspect]
     Dosage: 5 MG, UNK
  3. ZYPREXA [Suspect]
     Dosage: 7.5 MG, UNK
  4. ZYPREXA [Suspect]
     Dosage: 10 MG, UNK

REACTIONS (3)
  - DIABETES MELLITUS [None]
  - LIVER TRANSPLANT [None]
  - METABOLIC DISORDER [None]
